FAERS Safety Report 9636015 (Version 1)
Quarter: 2013Q4

REPORT INFORMATION
  Report Type: Spontaneous
  Country: US (occurrence: US)
  Receive Date: 20131021
  Receipt Date: 20131021
  Transmission Date: 20140711
  Serious: Yes (Hospitalization)
  Sender: FDA-Public Use
  Company Number: US-UCBSA-100214

PATIENT
  Age: 34 Year
  Sex: Female

DRUGS (1)
  1. CIMZIA [Suspect]
     Dosage: STRENGTH: 200 MG
     Route: 058
     Dates: start: 201301, end: 20130908

REACTIONS (1)
  - Thrombotic thrombocytopenic purpura [Unknown]
